FAERS Safety Report 5501382-X (Version None)
Quarter: 2007Q4

REPORT INFORMATION
  Report Type: 
  Country: None (occurrence: None)
  Receive Date: 20071018
  Receipt Date: 20070117
  Transmission Date: 20080405
  Serious: Yes (Other)
  Sender: FDA-Public Use
  Company Number: 2007005204

PATIENT
  Age: 49 Year
  Sex: Male
  Weight: 72.6 kg

DRUGS (3)
  1. NEURONTIN [Suspect]
     Indication: NEUROPATHY
     Dates: start: 20040101, end: 20040101
  2. SOLU-MEDROL [Concomitant]
  3. AMINOPHYLLIN [Concomitant]

REACTIONS (1)
  - DYSPNOEA [None]
